FAERS Safety Report 23011804 (Version 3)
Quarter: 2023Q4

REPORT INFORMATION
  Report Type: Spontaneous
  Country: DE (occurrence: DE)
  Receive Date: 20230929
  Receipt Date: 20231021
  Transmission Date: 20240110
  Serious: Yes (Life-Threatening, Hospitalization, Other)
  Sender: FDA-Public Use
  Company Number: DE-ALXN-A202310383

PATIENT
  Age: 17 Year
  Sex: Male
  Weight: 78.2 kg

DRUGS (14)
  1. ULTOMIRIS [Suspect]
     Active Substance: RAVULIZUMAB-CWVZ
     Indication: Atypical haemolytic uraemic syndrome
     Dosage: 3300 MG, EVERY 8 WEEKS
     Route: 042
     Dates: start: 20220125
  2. AMLODIPIN                          /00972401/ [Concomitant]
     Indication: Hypotension
     Dosage: 10 MG, QD
     Route: 065
  3. AMLODIPIN                          /00972401/ [Concomitant]
     Dosage: 10 MG, QD
     Route: 065
  4. DOXAZOSIN [Concomitant]
     Active Substance: DOXAZOSIN MESYLATE
     Dosage: 2 MG, UNK
     Route: 065
  5. DOXAZOSIN [Concomitant]
     Active Substance: DOXAZOSIN MESYLATE
     Indication: Hypotension
     Dosage: 20 MG, QD
     Route: 065
  6. DOXAZOSIN [Concomitant]
     Active Substance: DOXAZOSIN MESYLATE
     Dosage: 20 MG, QD
     Route: 065
  7. DOXAZOSIN [Concomitant]
     Active Substance: DOXAZOSIN MESYLATE
     Dosage: 3 MG, QD
     Route: 065
  8. FUROSEMIDE [Concomitant]
     Active Substance: FUROSEMIDE
     Indication: Product used for unknown indication
     Dosage: 20 MG, UNK
     Route: 065
  9. METOPROLOL [Concomitant]
     Active Substance: METOPROLOL
     Dosage: 10 MG, QD
     Route: 065
  10. METOPROLOL [Concomitant]
     Active Substance: METOPROLOL
     Indication: Hypotension
     Dosage: 47.5 MG, QD
     Route: 065
  11. METOPROLOL [Concomitant]
     Active Substance: METOPROLOL
     Dosage: 47.5 MG, QD
     Route: 065
  12. NIFEDIPINE [Concomitant]
     Active Substance: NIFEDIPINE
     Indication: Product used for unknown indication
     Dosage: UNK
     Route: 065
  13. RAMIPRIL [Concomitant]
     Active Substance: RAMIPRIL
     Indication: Hypotension
     Dosage: 10 MG, UNK
     Route: 065
  14. RAMIPRIL [Concomitant]
     Active Substance: RAMIPRIL
     Indication: Hypertension

REACTIONS (6)
  - Meningococcal sepsis [Recovered/Resolved]
  - Myopericarditis [Recovering/Resolving]
  - Paronychia [Unknown]
  - Haemorrhage [Unknown]
  - Ingrowing nail [Unknown]
  - Cholelithiasis [Unknown]

NARRATIVE: CASE EVENT DATE: 20230806
